FAERS Safety Report 15392140 (Version 1)
Quarter: 2018Q3

REPORT INFORMATION
  Report Type: Spontaneous
  Country: US (occurrence: US)
  Receive Date: 20180910
  Receipt Date: 20180910
  Transmission Date: 20181010
  Serious: Yes (Hospitalization)
  Sender: FDA-Public Use
  Company Number: None

PATIENT
  Age: 66 Year
  Sex: Female

DRUGS (6)
  1. LEVOTHYROXINE. [Concomitant]
     Active Substance: LEVOTHYROXINE
  2. DOCUSATE [Concomitant]
     Active Substance: DOCUSATE
  3. PROCRIT [Suspect]
     Active Substance: ERYTHROPOIETIN
     Indication: ANAEMIA
     Dosage: ?          OTHER FREQUENCY:Q3WK;OTHER ROUTE:INJ?
     Dates: start: 20171114
  4. LISINOPRIL. [Concomitant]
     Active Substance: LISINOPRIL
  5. IBUPROFEN. [Concomitant]
     Active Substance: IBUPROFEN
  6. ATORVASTATIN [Concomitant]
     Active Substance: ATORVASTATIN

REACTIONS (1)
  - Dysarthria [None]

NARRATIVE: CASE EVENT DATE: 20180905
